FAERS Safety Report 9868150 (Version 2)
Quarter: 2014Q2

REPORT INFORMATION
  Report Type: Spontaneous
  Country: JP (occurrence: JP)
  Receive Date: 20140204
  Receipt Date: 20140530
  Transmission Date: 20141212
  Serious: Yes (Hospitalization)
  Sender: FDA-Public Use
  Company Number: PHHY2014JP012935

PATIENT
  Age: 73 Year
  Sex: Male

DRUGS (5)
  1. ZOMETA [Suspect]
     Indication: METASTASES TO BONE
     Dosage: 4 MG, EVERY 4 WEEKS
     Route: 041
     Dates: start: 20120119, end: 20131021
  2. LEUPLIN [Concomitant]
     Indication: PROSTATE CANCER
     Dosage: UNK UKN, UNK
     Dates: start: 20120213
  3. CASODEX [Concomitant]
     Indication: PROSTATE CANCER
     Dosage: 1 DF, UNK
     Route: 048
     Dates: start: 20120106
  4. CELECOX [Concomitant]
     Indication: PAIN
     Dosage: 1 DF, UNK
     Route: 048
     Dates: start: 20120123
  5. FLIVAS [Concomitant]
     Indication: PROSTATE CANCER
     Dosage: 1 DF, UNK
     Route: 048
     Dates: start: 20131021

REACTIONS (5)
  - Osteonecrosis of jaw [Recovering/Resolving]
  - Erythema [Unknown]
  - Swelling [Unknown]
  - Gingivitis [Unknown]
  - Pain [Unknown]
